FAERS Safety Report 18038064 (Version 7)
Quarter: 2021Q1

REPORT INFORMATION
  Report Type: Report from Study
  Country: US (occurrence: US)
  Receive Date: 20200717
  Receipt Date: 20210114
  Transmission Date: 20210419
  Serious: Yes (Hospitalization, Other)
  Sender: FDA-Public Use
  Company Number: US-BAYER-2020-141072

PATIENT
  Age: 62 Year
  Sex: Female

DRUGS (18)
  1. ASPIRIN [ACETYLSALICYLIC ACID] [Concomitant]
     Active Substance: ASPIRIN
  2. SIMVASTATIN. [Concomitant]
     Active Substance: SIMVASTATIN
  3. PREDNISONE. [Concomitant]
     Active Substance: PREDNISONE
  4. GABAPENTIN. [Concomitant]
     Active Substance: GABAPENTIN
  5. STIVARGA [Suspect]
     Active Substance: REGORAFENIB
     Indication: COLORECTAL CANCER
     Dosage: 160 MG, QD FOR 21 DAYS OF EVERY 28
     Route: 048
     Dates: start: 20200601, end: 2020
  6. STIVARGA [Suspect]
     Active Substance: REGORAFENIB
     Indication: COLORECTAL CANCER
     Dosage: 80 MG, QD FOR FIRST 21 DAYS OF EACH 28 DAYS CYCLE
     Route: 048
     Dates: start: 2020, end: 2020
  7. ZOFRAN [Concomitant]
     Active Substance: ONDANSETRON HYDROCHLORIDE
  8. STIVARGA [Suspect]
     Active Substance: REGORAFENIB
     Indication: METASTASES TO BONE
     Dosage: 160 MG, QD FOR 21 DAYS OF EVERY 28
     Route: 048
     Dates: start: 20200701, end: 2020
  9. DOCUSATE SODIUM. [Concomitant]
     Active Substance: DOCUSATE SODIUM
  10. ZOLEDRONIC ACID [Concomitant]
     Active Substance: ZOLEDRONIC ACID
  11. STIVARGA [Suspect]
     Active Substance: REGORAFENIB
     Indication: COLORECTAL CANCER
     Dosage: 120 MG, QD 1?21 OF EVERY 28 DAY CYCLE
     Route: 048
  12. VITAMIN B6 [Concomitant]
     Active Substance: PYRIDOXINE HYDROCHLORIDE
  13. ENALAPRIL MALEATE. [Concomitant]
     Active Substance: ENALAPRIL MALEATE
  14. METFORMIN HYDROCHLORIDE. [Concomitant]
     Active Substance: METFORMIN HYDROCHLORIDE
  15. STIVARGA [Suspect]
     Active Substance: REGORAFENIB
     Indication: COLORECTAL CANCER
     Dosage: 80 MG, QD FOR FIRST 21 DAYS OF EACH 28 DAYS CYCLE
     Route: 048
     Dates: start: 2020, end: 2020
  16. CALCIUM CARBONATE. [Concomitant]
     Active Substance: CALCIUM CARBONATE
  17. FLONASE [MOMETASONE FUROATE] [Concomitant]
     Active Substance: MOMETASONE FUROATE
  18. ZOFRAN [Concomitant]
     Active Substance: ONDANSETRON HYDROCHLORIDE

REACTIONS (26)
  - Tumour marker increased [Recovering/Resolving]
  - Therapeutic response unexpected [Recovering/Resolving]
  - Apathy [None]
  - Neuropathy peripheral [None]
  - Tongue discomfort [Unknown]
  - Depression [None]
  - Platelet count decreased [Recovering/Resolving]
  - Pulmonary mass [Unknown]
  - Skin fissures [Unknown]
  - Fatigue [Unknown]
  - Paranasal sinus discomfort [Not Recovered/Not Resolved]
  - Eating disorder [Unknown]
  - Headache [Unknown]
  - Abdominal discomfort [Unknown]
  - Anaemia [None]
  - Depressed mood [None]
  - Productive cough [None]
  - Pain in extremity [Not Recovered/Not Resolved]
  - Cough [None]
  - Headache [Recovered/Resolved]
  - Paranasal sinus hypersecretion [Unknown]
  - Sinus disorder [Unknown]
  - Dysphonia [Unknown]
  - Adverse drug reaction [Unknown]
  - Headache [Not Recovered/Not Resolved]
  - Blood count abnormal [Recovering/Resolving]
